FAERS Safety Report 8023831-8 (Version None)
Quarter: 2012Q1

REPORT INFORMATION
  Report Type: 
  Country: None (occurrence: None)
  Receive Date: 20120105
  Receipt Date: 20111228
  Transmission Date: 20120608
  Serious: Yes (Death, Life-Threatening, Hospitalization)
  Sender: FDA-Public Use
  Company Number: US-JNJFOC-20051101127

PATIENT
  Sex: Female
  Weight: 58.97 kg

DRUGS (12)
  1. REMICADE [Suspect]
     Indication: RHEUMATOID ARTHRITIS
     Route: 042
     Dates: start: 20040811
  2. REMICADE [Suspect]
     Route: 042
     Dates: start: 20020701
  3. HYDROCHLOROTHIAZIDE [Concomitant]
  4. REMICADE [Suspect]
     Route: 042
     Dates: start: 20020701, end: 20040401
  5. REMICADE [Suspect]
     Route: 042
     Dates: start: 20040101, end: 20040811
  6. PREDNISONE TAB [Concomitant]
     Indication: INFLAMMATION
     Dosage: DOSE STRENGTH: 10 MG
     Route: 065
     Dates: start: 20040902, end: 20041101
  7. IMURAN [Suspect]
     Indication: RHEUMATOID ARTHRITIS
     Dates: end: 20040902
  8. IMURAN [Suspect]
     Indication: INFLAMMATION
     Dates: end: 20040902
  9. POTASSIUM CHLORIDE [Concomitant]
  10. FOSAMAX [Concomitant]
  11. REMICADE [Suspect]
     Route: 042
     Dates: start: 20040401
  12. PREDNISONE TAB [Concomitant]
     Indication: RHEUMATOID ARTHRITIS
     Dosage: DOSE STRENGTH: 10 MG
     Route: 065
     Dates: start: 20040902, end: 20041101

REACTIONS (13)
  - ATRIAL FIBRILLATION [None]
  - UROSEPSIS [None]
  - INFUSION RELATED REACTION [None]
  - ARTHRITIS [None]
  - CARDIAC FAILURE CONGESTIVE [None]
  - FLUSHING [None]
  - MYOCARDIAL INFARCTION [None]
  - CEREBROVASCULAR ACCIDENT [None]
  - RASH [None]
  - RENAL FAILURE [None]
  - DRUG INEFFECTIVE [None]
  - MULTI-ORGAN FAILURE [None]
  - GASTROINTESTINAL INFECTION [None]
